FAERS Safety Report 16610653 (Version 1)
Quarter: 2019Q3

REPORT INFORMATION
  Report Type: Report from Study
  Country: US (occurrence: US)
  Receive Date: 20190722
  Receipt Date: 20190722
  Transmission Date: 20191004
  Serious: Yes (Death, Life-Threatening)
  Sender: FDA-Public Use
  Company Number: US-PFIZER INC-2019308781

PATIENT
  Age: 60 Year
  Sex: Female

DRUGS (6)
  1. VORICONAZOLE. [Suspect]
     Active Substance: VORICONAZOLE
     Indication: ASPERGILLUS INFECTION
  2. POSACONAZOLE [Suspect]
     Active Substance: POSACONAZOLE
     Indication: OSTEOMYELITIS FUNGAL
     Dosage: UNK (TREATMENT 1-69 DAYS)
  3. POSACONAZOLE [Suspect]
     Active Substance: POSACONAZOLE
     Indication: ASPERGILLUS INFECTION
  4. MICAFUNGIN. [Suspect]
     Active Substance: MICAFUNGIN SODIUM
     Indication: ASPERGILLUS INFECTION
  5. MICAFUNGIN. [Suspect]
     Active Substance: MICAFUNGIN SODIUM
     Indication: OSTEOMYELITIS FUNGAL
     Dosage: UNK (TREATMENT 1-69 DAYS)
  6. VORICONAZOLE. [Suspect]
     Active Substance: VORICONAZOLE
     Indication: OSTEOMYELITIS FUNGAL
     Dosage: UNK (TREATMENT 0-1 DAYS)

REACTIONS (2)
  - Condition aggravated [Fatal]
  - Drug ineffective [Fatal]
